FAERS Safety Report 5990510-8 (Version None)
Quarter: 2008Q4

REPORT INFORMATION
  Report Type: 
  Country: None (occurrence: None)
  Receive Date: 20081202
  Receipt Date: 20080402
  Transmission Date: 20090506
  Serious: Yes (Other)
  Sender: FDA-Public Use
  Company Number: WAES 0804USA00794

PATIENT
  Age: 60 Year
  Sex: Female

DRUGS (1)
  1. FOSAMAX [Suspect]
     Indication: OSTEOPOROSIS
     Dosage: 70 MG/WKY/PO
     Route: 048
     Dates: start: 20040729, end: 20060201

REACTIONS (10)
  - ARTHRALGIA [None]
  - BACK PAIN [None]
  - GASTROOESOPHAGEAL REFLUX DISEASE [None]
  - GINGIVAL ABSCESS [None]
  - GINGIVAL INFECTION [None]
  - GINGIVAL PAIN [None]
  - HYPERTENSION [None]
  - OSTEOMYELITIS [None]
  - TOOTH ABSCESS [None]
  - TOOTH FRACTURE [None]
